FAERS Safety Report 24453240 (Version 2)
Quarter: 2024Q4

REPORT INFORMATION
  Report Type: Report from Study
  Country: US (occurrence: US)
  Receive Date: 20241017
  Receipt Date: 20241018
  Transmission Date: 20250114
  Serious: No
  Sender: ROCHE
  Company Number: US-ROCHE-3070997

PATIENT
  Age: 55 Year
  Sex: Female
  Weight: 67.59 kg

DRUGS (16)
  1. RITUXAN [Suspect]
     Active Substance: RITUXIMAB
     Indication: Granulomatosis with polyangiitis
     Route: 041
  2. RITUXAN [Suspect]
     Active Substance: RITUXIMAB
     Route: 041
  3. SOLU-MEDROL [Concomitant]
     Active Substance: METHYLPREDNISOLONE SODIUM SUCCINATE
  4. TYLENOL [Concomitant]
     Active Substance: ACETAMINOPHEN
     Route: 048
  5. CLARITIN [Concomitant]
     Active Substance: LORATADINE
     Route: 048
  6. IMURAN [Concomitant]
     Active Substance: AZATHIOPRINE
     Dosage: PO DAILY
  7. ARTEMETHER\LUMEFANTRINE [Concomitant]
     Active Substance: ARTEMETHER\LUMEFANTRINE
     Dosage: 2X Q 5M
     Route: 042
  8. METHOTREXATE SODIUM [Concomitant]
     Active Substance: METHOTREXATE SODIUM
     Dosage: WEEKLY WITH DAILY FA
     Route: 058
  9. PREDNISONE [Concomitant]
     Active Substance: PREDNISONE
     Dosage: PO DAILY
  10. FOLIC ACID [Concomitant]
     Active Substance: FOLIC ACID
     Dosage: 1 MG TABLET 1 ORAL DAILY
  11. METHOTREXATE SODIUM [Concomitant]
     Active Substance: METHOTREXATE SODIUM
     Dosage: 50 MG/2ML SOLUTION 0.6 INJECTION UNDER THE SKIN ONCE WEEKLY
  12. VITAMIN C [Concomitant]
     Active Substance: ASCORBIC ACID
     Dosage: ORAL DAILY
  13. IBUPROFEN [Concomitant]
     Active Substance: IBUPROFEN
     Dosage: 1 ORAL AS NEEDED
  14. VITAMIN B COMPLEX [Concomitant]
     Active Substance: CYANOCOBALAMIN\DEXPANTHENOL\NIACINAMIDE\PYRIDOXINE HYDROCHLORIDE\RIBOFLAVIN 5^-PHOSPHATE SODIUM\THIA
     Dosage: 1 ORAL DAILY
  15. METOPROLOL COMP [Concomitant]
     Dosage: 100-25MG TABLET 1 ORAL DAILY
  16. ALENDRONATE SODIUM [Concomitant]
     Active Substance: ALENDRONATE SODIUM
     Dosage: 35 MG TABLET, 1 ORAL WEEKLY

REACTIONS (5)
  - Off label use [Unknown]
  - Productive cough [Unknown]
  - Sinusitis [Unknown]
  - Dyspnoea [Unknown]
  - Cough [Unknown]
